FAERS Safety Report 7092363-6 (Version None)
Quarter: 2010Q4

REPORT INFORMATION
  Report Type: 
  Country: None (occurrence: None)
  Receive Date: 20101110
  Receipt Date: 20101029
  Transmission Date: 20110411
  Serious: Yes (Hospitalization)
  Sender: FDA-Public Use
  Company Number: US-BIOGENIDEC-2010BI035677

PATIENT
  Age: 54 Year
  Sex: Female

DRUGS (19)
  1. TYSABRI [Suspect]
     Indication: MULTIPLE SCLEROSIS
     Route: 042
     Dates: start: 20080325
  2. ADVAIR DISKUS 250/50 [Concomitant]
     Indication: ASTHMA
  3. ADVAIR DISKUS 250/50 [Concomitant]
     Indication: RHINITIS ALLERGIC
  4. SYMMETREL [Concomitant]
  5. BACLOFEN [Concomitant]
  6. TEGRETOL [Concomitant]
  7. FLEXERIL [Concomitant]
     Indication: MUSCLE SPASMS
  8. DOCUSATE [Concomitant]
  9. GABAPENTIN [Concomitant]
  10. ALBUTEROL [Concomitant]
     Indication: ASTHMA
  11. CELECOXIB [Concomitant]
  12. ZOLOFT [Concomitant]
  13. SINGULAIR [Concomitant]
     Indication: ASTHMA
  14. SINGULAIR [Concomitant]
     Indication: RHINITIS ALLERGIC
  15. BACTRIM DS [Concomitant]
     Indication: ANTIFUNGAL PROPHYLAXIS
  16. THEOPHYLLINE [Concomitant]
     Indication: ASTHMA
  17. THEOPHYLLINE [Concomitant]
     Indication: RHINITIS ALLERGIC
  18. TOPAMAX [Concomitant]
  19. VESICARE [Concomitant]

REACTIONS (2)
  - INTERVERTEBRAL DISC PROTRUSION [None]
  - SPINAL COLUMN STENOSIS [None]
